FAERS Safety Report 22338036 (Version 1)
Quarter: 2023Q2

REPORT INFORMATION
  Report Type: Report from Study
  Country: US (occurrence: None)
  Receive Date: 20230518
  Receipt Date: 20230518
  Transmission Date: 20230722
  Serious: Yes (Death, Life-Threatening, Other)
  Sender: FDA-Public Use
  Company Number: US-ROCHE-3349509

PATIENT

DRUGS (14)
  1. RITUXIMAB [Suspect]
     Active Substance: RITUXIMAB
     Indication: Burkitt^s lymphoma
     Route: 065
     Dates: start: 20130125, end: 20130125
  2. RITUXIMAB [Suspect]
     Active Substance: RITUXIMAB
     Route: 065
     Dates: start: 20130130, end: 20130130
  3. RITUXIMAB [Suspect]
     Active Substance: RITUXIMAB
     Dosage: SAME DOSE TAKEN ON 15/MAR/2013, 5/APR/2013, 26/APR/13, 17/MAY/13
     Route: 065
     Dates: start: 20130222, end: 20130222
  4. CYCLOPHOSPHAMIDE [Suspect]
     Active Substance: CYCLOPHOSPHAMIDE
     Indication: Burkitt^s lymphoma
     Dosage: DOSES TAKEN ON 27/FEB/2013, 20/MAR/2013, 10/APR/2013, 1/MAY/2013, 22/MAY/2013
     Route: 065
     Dates: start: 20130130, end: 20130130
  5. DOXORUBICIN [Suspect]
     Active Substance: DOXORUBICIN
     Indication: Burkitt^s lymphoma
     Route: 065
     Dates: start: 20130126, end: 20130129
  6. DOXORUBICIN [Suspect]
     Active Substance: DOXORUBICIN
     Dosage: DOSES TAKEN ON 16/MAR/2013, 5/APR/2013, 26/APR/2013, 17/MAY/2013
     Route: 065
     Dates: start: 20130222, end: 20130225
  7. ETOPOSIDE [Suspect]
     Active Substance: ETOPOSIDE
     Indication: Burkitt^s lymphoma
     Route: 065
     Dates: start: 20130126, end: 20130129
  8. ETOPOSIDE [Suspect]
     Active Substance: ETOPOSIDE
     Dosage: DOSE TAKEN ON 16/MAR/2013, 5/APR/2013, 26/APR/2013, 17/MAY/2013
     Route: 065
     Dates: start: 20130222, end: 20130225
  9. FILGRASTIM [Suspect]
     Active Substance: FILGRASTIM
     Indication: Burkitt^s lymphoma
     Dosage: DOSE ON 28/FEB/2013, 21/MAR/13, 11/APR/2013, 2/MAY/2013, 23/MAY/2013
     Route: 065
     Dates: start: 20130131, end: 20130209
  10. METHOTREXATE [Suspect]
     Active Substance: METHOTREXATE
     Indication: Burkitt^s lymphoma
     Dosage: DOSE ON 5/APR/2013, 9/APR/2013, 26/APR/2013, 29/APR/2013, 17/MAY/2013, 20/MAY/2013
     Route: 065
     Dates: start: 20130318, end: 20130318
  11. PREDNISONE [Suspect]
     Active Substance: PREDNISONE
     Indication: Burkitt^s lymphoma
     Route: 065
     Dates: start: 20130125, end: 20130130
  12. PREDNISONE [Suspect]
     Active Substance: PREDNISONE
     Dosage: DOSE ON 15/MAR/2013, 5/APR/2013, 26/APR/2013, 17/MAY/2013
     Route: 065
     Dates: start: 20130222, end: 20130226
  13. VINCRISTINE [Suspect]
     Active Substance: VINCRISTINE
     Indication: Burkitt^s lymphoma
     Route: 065
     Dates: start: 20130126, end: 20130129
  14. VINCRISTINE [Suspect]
     Active Substance: VINCRISTINE
     Dosage: DOSE ON 16/MAR/2013, 5/APR/2013, 26/APR/2013, 17/MAY/2013
     Route: 065
     Dates: start: 20130222, end: 20130225

REACTIONS (16)
  - Haematoma [Fatal]
  - Anaemia [Not Recovered/Not Resolved]
  - Anxiety [Not Recovered/Not Resolved]
  - Febrile neutropenia [Recovered/Resolved]
  - Hypocalcaemia [Recovered/Resolved]
  - Hypokalaemia [Recovered/Resolved]
  - Hypotension [Recovered/Resolved]
  - Lower gastrointestinal haemorrhage [Recovered/Resolved]
  - Lymphocyte count decreased [Recovered/Resolved]
  - Neutrophil count decreased [Recovered/Resolved]
  - Platelet count decreased [Recovered/Resolved]
  - Respiratory failure [Recovered/Resolved]
  - Sinus tachycardia [Not Recovered/Not Resolved]
  - Second primary malignancy [Not Recovered/Not Resolved]
  - Upper respiratory tract infection [Recovered/Resolved]
  - White blood cell count decreased [Recovered/Resolved]

NARRATIVE: CASE EVENT DATE: 20130130
